FAERS Safety Report 7335514 (Version 3)
Quarter: 2013Q2

REPORT INFORMATION
  Report Type: Spontaneous
  Country: US (occurrence: None)
  Receive Date: 20100301
  Receipt Date: 20130301
  Transmission Date: 20140414
  Serious: Yes (Hospitalization, Other)
  Sender: FDA-Public Use
  Company Number: RB-20782-2009

PATIENT
  Sex: Female
  Weight: 2.4 kg

DRUGS (4)
  1. SUBOXONE [Suspect]
     Indication: DRUG DEPENDENCE
     Dosage: (8 MG QD TRANSPLACENTAL)
     Route: 064
     Dates: start: 200901, end: 20090916
  2. XANAX XR [Concomitant]
  3. ADDERALL [Concomitant]
  4. EFFEXOR [Concomitant]

REACTIONS (4)
  - MATERNAL EXPOSURE DURING PREGNANCY [None]
  - DRUG WITHDRAWAL SYNDROME NEONATAL [None]
  - Foetal exposure during pregnancy [None]
  - Weight decreased [None]
